FAERS Safety Report 5126535-4 (Version None)
Quarter: 2006Q4

REPORT INFORMATION
  Report Type: 
  Country: None (occurrence: None)
  Receive Date: 20061010
  Receipt Date: 20061003
  Transmission Date: 20070319
  Serious: Yes (Death)
  Sender: FDA-Public Use
  Company Number: 163-21880-06070880

PATIENT
  Age: 64 Year
  Sex: Female

DRUGS (3)
  1. REVLIMID [Suspect]
     Indication: MYELODYSPLASTIC SYNDROME
     Dosage: 5 MG - 10 MG, DAILY, ORAL
     Route: 048
     Dates: start: 20060321, end: 20060101
  2. METOPROLOL TARTRATE [Concomitant]
  3. SIMVASTATIN [Concomitant]

REACTIONS (2)
  - MYOCARDIAL INFARCTION [None]
  - URTICARIA [None]
